FAERS Safety Report 6198166-9 (Version None)
Quarter: 2009Q2

REPORT INFORMATION
  Report Type: 
  Country: None (occurrence: None)
  Receive Date: 20090521
  Receipt Date: 20090514
  Transmission Date: 20091009
  Serious: Yes (Other)
  Sender: FDA-Public Use
  Company Number: GB-ROCHE-633326

PATIENT
  Sex: Female
  Weight: 88 kg

DRUGS (5)
  1. ORLISTAT [Suspect]
     Indication: OBESITY
     Route: 048
     Dates: start: 20090216
  2. IRBESARTAN [Concomitant]
     Indication: BLOOD PRESSURE
     Route: 048
  3. PREMARIN [Concomitant]
     Indication: HORMONE REPLACEMENT THERAPY
     Dosage: REPORTED AS PREMARAN
     Route: 048
  4. LORATADINE [Concomitant]
     Route: 048
  5. FIBER NOS [Concomitant]
     Indication: IRRITABLE BOWEL SYNDROME
     Dosage: REPORTED AS FIBROGEL 1 SACHET DAILY
     Route: 048

REACTIONS (1)
  - DIVERTICULITIS [None]
